FAERS Safety Report 4386866-2 (Version None)
Quarter: 2004Q2

REPORT INFORMATION
  Report Type: 
  Country: None (occurrence: None)
  Receive Date: 20040629
  Receipt Date: 20040615
  Transmission Date: 20050107
  Serious: Yes (Hospitalization, Other)
  Sender: FDA-Public Use
  Company Number: 2004S1001751

PATIENT
  Age: 72 Year
  Sex: Female

DRUGS (5)
  1. DIAZEPAM [Suspect]
     Indication: BACK DISORDER
     Dosage: 10 MG BID, ORAL
     Route: 048
     Dates: start: 20010101, end: 20030505
  2. DIAZEPAM [Suspect]
     Indication: MUSCLE SPASMS
     Dosage: 10 MG BID, ORAL
     Route: 048
     Dates: start: 20010101, end: 20030505
  3. DIAZEPAM [Suspect]
     Indication: BACK DISORDER
     Dosage: 10 MG BID, ORAL
     Route: 048
     Dates: start: 20030509
  4. DIAZEPAM [Suspect]
     Indication: MUSCLE SPASMS
     Dosage: 10 MG BID, ORAL
     Route: 048
     Dates: start: 20030509
  5. DIPHENOXYLATE/ATROPINE SULFATE [Concomitant]

REACTIONS (4)
  - DRUG WITHDRAWAL CONVULSIONS [None]
  - TRANSIENT ISCHAEMIC ATTACK [None]
  - UNEVALUABLE EVENT [None]
  - VICTIM OF ABUSE [None]
